FAERS Safety Report 4538784-4 (Version None)
Quarter: 2004Q4

REPORT INFORMATION
  Report Type: 
  Country: None (occurrence: None)
  Receive Date: 20041222
  Receipt Date: 20041210
  Transmission Date: 20050328
  Serious: Yes (Other)
  Sender: FDA-Public Use
  Company Number: 2004-0007843

PATIENT
  Sex: Male

DRUGS (1)
  1. HEPSERA [Suspect]
     Dosage: 10 MG, ORAL/OVER ONE YEAR
     Route: 048

REACTIONS (1)
  - JAUNDICE [None]
